FAERS Safety Report 18948901 (Version 2)
Quarter: 2021Q1

REPORT INFORMATION
  Report Type: Report from Study
  Country: BR (occurrence: BR)
  Receive Date: 20210227
  Receipt Date: 20210312
  Transmission Date: 20210420
  Serious: Yes (Other)
  Sender: FDA-Public Use
  Company Number: NVSC2021BR046016

PATIENT
  Sex: Male

DRUGS (2)
  1. GLIFAGE [Concomitant]
     Active Substance: METFORMIN HYDROCHLORIDE
     Indication: DIABETES MELLITUS
     Dosage: 2 DF, QD (AT NIGHT, STARTED 2 YEARS AGO)
     Route: 048
  2. ENTRESTO [Suspect]
     Active Substance: SACUBITRIL\VALSARTAN
     Indication: ARRHYTHMIA
     Dosage: 200 MG, BID (97/103 MG) (STARTED 1 YEAR AGO)
     Route: 065

REACTIONS (3)
  - Blindness [Unknown]
  - Cardiac disorder [Unknown]
  - Product use in unapproved indication [Unknown]
